FAERS Safety Report 19090311 (Version 2)
Quarter: 2021Q2

REPORT INFORMATION
  Report Type: Spontaneous
  Country: US (occurrence: US)
  Receive Date: 20210405
  Receipt Date: 20210506
  Transmission Date: 20210717
  Serious: No
  Sender: FDA-Public Use
  Company Number: US-ASTRAZENECA-2021A175324

PATIENT
  Sex: Female

DRUGS (2)
  1. SYMBICORT [Suspect]
     Active Substance: BUDESONIDE\FORMOTEROL FUMARATE DIHYDRATE
     Dosage: DOSE UNKNOWN; FREQUENCY UNKNOWN UNKNOWN
     Route: 055
     Dates: start: 2021
  2. SYMBICORT [Suspect]
     Active Substance: BUDESONIDE\FORMOTEROL FUMARATE DIHYDRATE
     Dosage: DOSE UNKNOWN; FREQUENCY UNKNOWN UNKNOWN
     Route: 055
     Dates: start: 2021

REACTIONS (4)
  - Incorrect dose administered by device [Unknown]
  - Dyspnoea [Unknown]
  - Drug delivery system issue [Unknown]
  - Drug ineffective [Unknown]
